FAERS Safety Report 18434771 (Version 1)
Quarter: 2020Q4

REPORT INFORMATION
  Report Type: Spontaneous
  Country: US (occurrence: US)
  Receive Date: 20201028
  Receipt Date: 20201028
  Transmission Date: 20210114
  Serious: No
  Sender: FDA-Public Use
  Company Number: US-SA-2020SA297265

PATIENT

DRUGS (9)
  1. FINASTERIDE. [Concomitant]
     Active Substance: FINASTERIDE
  2. DUPIXENT [Suspect]
     Active Substance: DUPILUMAB
     Indication: ILLNESS
  3. LAMICTAL [Concomitant]
     Active Substance: LAMOTRIGINE
  4. SERTRALINE HCL [Concomitant]
     Active Substance: SERTRALINE HYDROCHLORIDE
  5. BUPROPION. [Concomitant]
     Active Substance: BUPROPION
  6. FEXOFENADINE HCL [Concomitant]
     Active Substance: FEXOFENADINE HYDROCHLORIDE
  7. VITAMIN D2 [Concomitant]
     Active Substance: ERGOCALCIFEROL
  8. DUPIXENT [Suspect]
     Active Substance: DUPILUMAB
     Indication: DERMATITIS ATOPIC
     Dosage: 300 MG, QOW
     Route: 058
     Dates: start: 202010
  9. SEROQUEL [Concomitant]
     Active Substance: QUETIAPINE FUMARATE

REACTIONS (8)
  - Skin fissures [Unknown]
  - Dry skin [Unknown]
  - Pruritus [Unknown]
  - Sleep disorder [Unknown]
  - Product use in unapproved indication [Unknown]
  - Skin exfoliation [Unknown]
  - Skin haemorrhage [Unknown]
  - Wrong technique in product usage process [Unknown]

NARRATIVE: CASE EVENT DATE: 202010
